FAERS Safety Report 5781060-2 (Version None)
Quarter: 2008Q2

REPORT INFORMATION
  Report Type: 
  Country: None (occurrence: None)
  Receive Date: 20080620
  Receipt Date: 20080610
  Transmission Date: 20081010
  Serious: Yes (Other)
  Sender: FDA-Public Use
  Company Number: US-PFIZER INC-2008049635

PATIENT
  Sex: Female
  Weight: 61.7 kg

DRUGS (6)
  1. LYRICA [Suspect]
     Indication: MUSCLE SPASMS
     Dates: start: 20080415, end: 20080415
  2. ADVAIR DISKUS 100/50 [Concomitant]
  3. FLONASE [Concomitant]
  4. ASTELIN [Concomitant]
     Indication: ASTHMA
  5. TOPROL-XL [Concomitant]
     Indication: HYPERTENSION
  6. PRILOSEC [Concomitant]

REACTIONS (7)
  - DYSPHAGIA [None]
  - HEARING IMPAIRED [None]
  - HYPOAESTHESIA [None]
  - SPEECH DISORDER [None]
  - SPINAL FUSION SURGERY [None]
  - VISUAL ACUITY REDUCED [None]
  - WEIGHT DECREASED [None]
